FAERS Safety Report 7531549-0 (Version None)
Quarter: 2011Q2

REPORT INFORMATION
  Report Type: 
  Country: None (occurrence: None)
  Receive Date: 20110601
  Receipt Date: 20110523
  Transmission Date: 20111010
  Serious: Yes (Hospitalization)
  Sender: FDA-Public Use
  Company Number: 2011002125

PATIENT
  Age: 59 Year
  Sex: Male

DRUGS (1)
  1. TARCEVA [Suspect]
     Indication: LUNG ADENOCARCINOMA
     Dosage: 150 MG, UID/QD, ORAL
     Route: 048
     Dates: start: 20110423

REACTIONS (3)
  - HYDROTHORAX [None]
  - DRUG INEFFECTIVE [None]
  - NEOPLASM PROGRESSION [None]
